FAERS Safety Report 6068985-8 (Version None)
Quarter: 2009Q1

REPORT INFORMATION
  Report Type: 
  Country: None (occurrence: None)
  Receive Date: 20090206
  Receipt Date: 20090203
  Transmission Date: 20090719
  Serious: Yes (Death, Hospitalization)
  Sender: FDA-Public Use
  Company Number: JP-MERCK-0812USA04901

PATIENT
  Age: 80 Year
  Sex: Male
  Weight: 40 kg

DRUGS (15)
  1. FOSAMAX [Suspect]
     Indication: OSTEOPOROSIS
     Route: 048
     Dates: start: 20080901, end: 20081128
  2. FOSAMAX [Suspect]
     Route: 048
     Dates: end: 20080901
  3. BAKTAR [Suspect]
     Indication: ANTIFUNGAL PROPHYLAXIS
     Route: 048
     Dates: end: 20081128
  4. ISCOTIN [Concomitant]
     Indication: ANTIBIOTIC PROPHYLAXIS
     Route: 048
     Dates: end: 20081208
  5. MORPHINE HYDROCHLORIDE [Concomitant]
     Indication: COUGH
     Route: 048
     Dates: start: 20071121, end: 20081208
  6. TRACLEER [Concomitant]
     Indication: PULMONARY HYPERTENSION
     Route: 048
     Dates: start: 20070627, end: 20081208
  7. PYDOXAL [Concomitant]
     Indication: ADVERSE DRUG REACTION
     Route: 048
     Dates: end: 20081208
  8. MUCOSOLVAN [Concomitant]
     Indication: SPUTUM RETENTION
     Route: 048
     Dates: end: 20081208
  9. OMEPRAL [Concomitant]
     Indication: REFLUX OESOPHAGITIS
     Route: 048
     Dates: end: 20081208
  10. IMURAN [Concomitant]
     Indication: INTERSTITIAL LUNG DISEASE
     Route: 048
     Dates: end: 20081208
  11. CLARITHROMYCIN [Concomitant]
     Indication: PROPHYLAXIS
     Route: 048
     Dates: end: 20081208
  12. SINGULAIR [Concomitant]
     Indication: ASTHMA
     Route: 048
     Dates: start: 20070627, end: 20081208
  13. MEDICON [Concomitant]
     Indication: COUGH
     Route: 048
     Dates: start: 20071122, end: 20081208
  14. MAXIPIME [Concomitant]
     Indication: PNEUMONIA
     Route: 042
     Dates: start: 20081220
  15. BACTRIM [Concomitant]
     Indication: PNEUMONIA
     Route: 041
     Dates: start: 20081220

REACTIONS (2)
  - PANCYTOPENIA [None]
  - RESPIRATORY FAILURE [None]
